FAERS Safety Report 9732577 (Version 3)
Quarter: 2014Q2

REPORT INFORMATION
  Report Type: Spontaneous
  Country: GB (occurrence: GB)
  Receive Date: 20131204
  Receipt Date: 20140530
  Transmission Date: 20141212
  Serious: Yes (Death)
  Sender: FDA-Public Use
  Company Number: GB-INCYTE CORPORATION-2013IN002883

PATIENT
  Age: 70 Year
  Sex: Female

DRUGS (8)
  1. JAKAVI [Suspect]
     Indication: MYELOFIBROSIS
     Dosage: 30 MG, DAILY
     Route: 048
     Dates: start: 20130328, end: 20130530
  2. JAKAVI [Suspect]
     Indication: SPLENOMEGALY
     Dosage: 40 MG, DAILY
     Route: 048
     Dates: start: 20130530, end: 20131121
  3. JAKAVI [Suspect]
     Dosage: 10 MG, DAILY
     Route: 048
     Dates: start: 20131213
  4. JAKAVI [Suspect]
     Dosage: 20 MG, DAILY
     Route: 048
     Dates: start: 20131230
  5. DANAZOL [Concomitant]
     Dosage: 400 MG, UNK
     Route: 048
     Dates: start: 20100521
  6. OMEPRAZOLE [Concomitant]
     Dosage: 20 MG, UNK
     Route: 048
     Dates: start: 2009
  7. HYDROXYCARBAMIDE [Concomitant]
     Dosage: 1000 MG
     Route: 048
     Dates: start: 20131031
  8. HYDROXYCARBAMIDE [Concomitant]
     Dosage: UNK UKN, UNK

REACTIONS (2)
  - Disease progression [Fatal]
  - Therapeutic response decreased [Fatal]
